FAERS Safety Report 8425243-1 (Version None)
Quarter: 2012Q2

REPORT INFORMATION
  Report Type: 
  Country: None (occurrence: None)
  Receive Date: 20120605
  Receipt Date: 20120523
  Transmission Date: 20120825
  Serious: Yes (Other)
  Sender: FDA-Public Use
  Company Number: GER/UKI/12/0024444

PATIENT
  Age: 46 Year
  Sex: Male

DRUGS (3)
  1. LEVETIRACETAM [Suspect]
     Indication: EPILEPSY
     Dosage: ORAL
     Route: 048
     Dates: start: 20090401
  2. ALBUTEROL SULFATE [Concomitant]
  3. SERETIDE (SERETIDE) [Concomitant]

REACTIONS (2)
  - COUGH [None]
  - DYSGEUSIA [None]
